FAERS Safety Report 7063316-9 (Version None)
Quarter: 2010Q4

REPORT INFORMATION
  Report Type: 
  Country: None (occurrence: None)
  Receive Date: 20101026
  Receipt Date: 20101020
  Transmission Date: 20110411
  Serious: Yes (Hospitalization, Congenital Anomaly)
  Sender: FDA-Public Use
  Company Number: FR-GILEAD-2010-0030100

PATIENT
  Sex: Female
  Weight: 1.69 kg

DRUGS (12)
  1. VIREAD [Suspect]
     Indication: HIV INFECTION
     Route: 064
     Dates: start: 20050101, end: 20091001
  2. VIREAD [Suspect]
     Route: 064
     Dates: start: 20091119
  3. ZIAGEN [Concomitant]
     Route: 064
     Dates: end: 20091001
  4. ZIAGEN [Concomitant]
     Dates: start: 20091119
  5. SUSTIVA [Concomitant]
     Route: 064
     Dates: end: 20091001
  6. REYATAZ [Concomitant]
     Route: 064
     Dates: start: 20091119
  7. NORVIR [Concomitant]
     Route: 064
     Dates: start: 20091119
  8. LOXEN [Concomitant]
     Route: 064
     Dates: start: 20100120
  9. SPASFON [Concomitant]
     Route: 064
     Dates: start: 20100210
  10. RETROVIR [Concomitant]
  11. AZT [Concomitant]
     Route: 064
  12. CELESTONE [Concomitant]
     Route: 064

REACTIONS (5)
  - CARDIOMEGALY [None]
  - CONGENITAL PULMONARY VALVE ATRESIA [None]
  - CONGENITAL TRICUSPID VALVE ATRESIA [None]
  - NEONATAL RESPIRATORY DISTRESS SYNDROME [None]
  - VENTRICULAR HYPOPLASIA [None]
